FAERS Safety Report 10012872 (Version 1)
Quarter: 2014Q1

REPORT INFORMATION
  Report Type: Spontaneous
  Country: DK (occurrence: CA)
  Receive Date: 20140314
  Receipt Date: 20140314
  Transmission Date: 20141002
  Serious: Yes (Other)
  Sender: FDA-Public Use
  Company Number: CA-FRI-1000064615

PATIENT
  Sex: Female

DRUGS (5)
  1. CELEXA [Suspect]
     Indication: MAJOR DEPRESSION
     Dosage: 20 MG
     Route: 048
  2. CELEXA [Suspect]
     Dosage: 60 MG
     Route: 048
  3. CELEXA [Suspect]
     Dosage: 30 MG
     Route: 048
  4. CALCIUM WITH VITAMIN D [Concomitant]
     Indication: OSTEOPOROSIS
     Dosage: DAILY DOSE NOT REPORTED
     Route: 048
  5. PROLIA [Concomitant]
     Indication: OSTEOPOROSIS
     Dosage: DAILY DOSE NOT REPORTED

REACTIONS (2)
  - Pathological fracture [Unknown]
  - Prescribed overdose [Unknown]
